FAERS Safety Report 20947385 (Version 1)
Quarter: 2022Q2

REPORT INFORMATION
  Report Type: Spontaneous
  Country: US (occurrence: US)
  Receive Date: 20220610
  Receipt Date: 20220610
  Transmission Date: 20220721
  Serious: No
  Sender: FDA-Public Use
  Company Number: US-ELI_LILLY_AND_COMPANY-US202206000593

PATIENT
  Age: 65 Year
  Sex: Female
  Weight: 90.703 kg

DRUGS (2)
  1. BEBTELOVIMAB [Suspect]
     Active Substance: BEBTELOVIMAB
     Indication: COVID-19
     Dosage: UNK UNK, SINGLE
     Route: 042
     Dates: start: 20220528, end: 20220528
  2. MUCINEX [Concomitant]
     Active Substance: GUAIFENESIN
     Indication: Nasal congestion

REACTIONS (8)
  - Rhinorrhoea [Recovering/Resolving]
  - Wheezing [Recovering/Resolving]
  - Sinusitis [Recovering/Resolving]
  - Dysphonia [Recovered/Resolved]
  - Headache [Unknown]
  - Pyrexia [Recovered/Resolved]
  - Chest discomfort [Not Recovered/Not Resolved]
  - Cough [Unknown]

NARRATIVE: CASE EVENT DATE: 20220501
